FAERS Safety Report 9136960 (Version 2)
Quarter: 2014Q3

REPORT INFORMATION
  Report Type: Report from Study
  Country: CO (occurrence: CO)
  Receive Date: 20130304
  Receipt Date: 20140701
  Transmission Date: 20150326
  Serious: Yes (Hospitalization)
  Sender: FDA-Public Use
  Company Number: CO-ELI_LILLY_AND_COMPANY-CO201302008711

PATIENT
  Age: 74 Year
  Sex: Female
  Weight: 39 kg

DRUGS (10)
  1. HUMIRA [Concomitant]
     Active Substance: ADALIMUMAB
     Indication: ARTHRITIS
     Dosage: UNK, EVERY 15DAYS
     Route: 065
  2. TERIPARATIDE [Suspect]
     Active Substance: TERIPARATIDE
     Dosage: UNK
     Dates: start: 20140618
  3. ATORVASTATIN [Concomitant]
     Active Substance: ATORVASTATIN
     Indication: PROPHYLAXIS
     Dosage: 20 MG, QD AT NIGHT
     Route: 065
  4. LOSARTAN [Concomitant]
     Active Substance: LOSARTAN
     Indication: TENSION
     Dosage: 25 MG, QD
     Route: 065
  5. ASPIRINETTA [Concomitant]
     Active Substance: ASPIRIN
     Indication: PRODUCT USED FOR UNKNOWN INDICATION
     Dosage: 100 MG, QD (MIDDAY)
     Route: 065
  6. SULFASALAZINE. [Concomitant]
     Active Substance: SULFASALAZINE
     Indication: PRODUCT USED FOR UNKNOWN INDICATION
     Dosage: 500 MG, BID
     Route: 065
  7. ACETAMINOPHEN AND CODEINE [Concomitant]
     Active Substance: ACETAMINOPHEN\CODEINE PHOSPHATE
     Indication: PAIN
     Dosage: 500 MG, BID
     Route: 065
  8. CORTISON [Concomitant]
     Active Substance: CORTISONE ACETATE
     Indication: PRODUCT USED FOR UNKNOWN INDICATION
     Dosage: 2.5 MG, QD
     Route: 065
  9. CALTRATE WITH VITAMIN D [Concomitant]
     Active Substance: CALCIUM CARBONATE\VITAMIN D
     Indication: PRODUCT USED FOR UNKNOWN INDICATION
  10. TERIPARATIDE [Suspect]
     Active Substance: TERIPARATIDE
     Indication: OSTEOPOROSIS
     Dosage: 20 UG, QD
     Route: 058
     Dates: start: 2012, end: 201301

REACTIONS (3)
  - Tremor [Recovering/Resolving]
  - Pain [Recovering/Resolving]
  - Hyponatraemia [Recovering/Resolving]
